FAERS Safety Report 6912396-7 (Version None)
Quarter: 2010Q3

REPORT INFORMATION
  Report Type: 
  Country: None (occurrence: None)
  Receive Date: 20100806
  Receipt Date: 20080411
  Transmission Date: 20110219
  Serious: Yes (Other)
  Sender: FDA-Public Use
  Company Number: US-PFIZER INC-2008032817

PATIENT
  Sex: Female

DRUGS (8)
  1. DILANTIN [Interacting]
     Indication: CONVULSION
  2. DILANTIN [Interacting]
     Indication: GRAND MAL CONVULSION
  3. LAMICTAL [Interacting]
     Indication: COMPLEX PARTIAL SEIZURES
     Route: 048
     Dates: start: 20060101
  4. KEPPRA [Interacting]
     Indication: COMPLEX PARTIAL SEIZURES
  5. ZONEGRAN [Suspect]
     Indication: CONVULSION
  6. EUGYNON [Concomitant]
     Indication: CONTRACEPTION
     Dates: start: 20070101
  7. FUROSEMIDE [Concomitant]
  8. ORAL CONTRACEPTIVE NOS [Concomitant]
     Indication: HORMONE THERAPY

REACTIONS (2)
  - COMPLEX PARTIAL SEIZURES [None]
  - DRUG INTERACTION [None]
